FAERS Safety Report 7527273-0 (Version None)
Quarter: 2011Q2

REPORT INFORMATION
  Report Type: 
  Country: None (occurrence: None)
  Receive Date: 20110607
  Receipt Date: 20110606
  Transmission Date: 20111010
  Serious: Yes (Hospitalization)
  Sender: FDA-Public Use
  Company Number: BE-BRISTOL-MYERS SQUIBB COMPANY-15131394

PATIENT
  Age: 54 Year
  Sex: Male
  Weight: 56 kg

DRUGS (4)
  1. CETUXIMAB [Suspect]
     Indication: HEAD AND NECK CANCER
     Dosage: 5MG/ML FIRST INF:02FEB10
     Route: 042
     Dates: start: 20100202, end: 20100202
  2. CILENGITIDE [Suspect]
     Indication: HEAD AND NECK CANCER
     Dosage: MOST RECENT (30TH) INF:26MAY10
     Route: 042
     Dates: start: 20100204
  3. CISPLATIN [Suspect]
     Indication: HEAD AND NECK CANCER
     Dosage: MOST RECENT (5TH) INF:17MAY10
     Route: 042
     Dates: start: 20100204
  4. FLUOROURACIL [Suspect]
     Indication: HEAD AND NECK CANCER
     Dosage: CONTINUOUS INF FROM DAY1 TO DAY4 OF CYCLE MOST RECENT AND 20TH ADMIN.:20MAY10
     Route: 042
     Dates: start: 20100204

REACTIONS (1)
  - PYREXIA [None]
